FAERS Safety Report 5246804-7 (Version None)
Quarter: 2007Q1

REPORT INFORMATION
  Report Type: 
  Country: None (occurrence: None)
  Receive Date: 20070226
  Receipt Date: 20070212
  Transmission Date: 20070707
  Serious: Yes (Hospitalization, Other)
  Sender: FDA-Public Use
  Company Number: US-SHR-US-2006-028117

PATIENT
  Age: 40 Year
  Sex: Male
  Weight: 104.31 kg

DRUGS (5)
  1. BETASERON [Suspect]
     Indication: RELAPSING-REMITTING MULTIPLE SCLEROSIS
     Dosage: 8 MIU, EVERY 2D
     Route: 058
     Dates: start: 20060726
  2. NEURONTIN [Concomitant]
     Dosage: 300 MG, 3X/DAY
  3. BACLOFEN [Concomitant]
     Dosage: 40 MG, 3X/DAY
  4. NORCO [Concomitant]
     Dosage: 10-325, 3X/DAY
  5. PEPCID [Concomitant]
     Dosage: UNK, AS REQ'D

REACTIONS (8)
  - DROOLING [None]
  - DYSKINESIA [None]
  - FACE INJURY [None]
  - GRAND MAL CONVULSION [None]
  - JOINT DISLOCATION [None]
  - LOSS OF CONSCIOUSNESS [None]
  - MEMORY IMPAIRMENT [None]
  - RELAPSING-REMITTING MULTIPLE SCLEROSIS [None]
